FAERS Safety Report 7202206-5 (Version None)
Quarter: 2010Q4

REPORT INFORMATION
  Report Type: 
  Country: None (occurrence: None)
  Receive Date: 20101229
  Receipt Date: 20101227
  Transmission Date: 20110411
  Serious: Yes (Other)
  Sender: FDA-Public Use
  Company Number: ES-BRISTOL-MYERS SQUIBB COMPANY-15442312

PATIENT
  Age: 67 Year
  Sex: Male

DRUGS (3)
  1. ABILIFY [Suspect]
     Dosage: DOSE REDUCED TO 10MG.
     Dates: start: 20101001
  2. DISTRANEURINE [Concomitant]
  3. LAMOTRIGINE [Concomitant]

REACTIONS (1)
  - ACUTE RESPIRATORY FAILURE [None]
